FAERS Safety Report 23977758 (Version 1)
Quarter: 2024Q2

REPORT INFORMATION
  Report Type: Report from Study
  Country: AU (occurrence: AU)
  Receive Date: 20240614
  Receipt Date: 20240614
  Transmission Date: 20240716
  Serious: Yes (Other)
  Sender: FDA-Public Use
  Company Number: AU-JNJFOC-20240634242

PATIENT

DRUGS (10)
  1. DARZALEX [Suspect]
     Active Substance: DARATUMUMAB
     Indication: Plasma cell myeloma
     Dosage: ON DAYS 1, 8, 15 AND 22 OF CYCLES 1 AND 2, AND ON DAYS 1 AND 15 OF CYCLES 3 AND 4 (SALVAGE THERAPY)
     Route: 042
  2. DARZALEX [Suspect]
     Active Substance: DARATUMUMAB
     Dosage: C 1 AND 2 AND ON D1 OF CYCLES 312 (CONSOLIDATION THERAPY)
     Route: 065
  3. LENALIDOMIDE [Suspect]
     Active Substance: LENALIDOMIDE
     Indication: Plasma cell myeloma
     Dosage: ON DAYS 121 OF CYCLES 14 (SALVAGE THERAPY)
     Route: 048
  4. LENALIDOMIDE [Suspect]
     Active Substance: LENALIDOMIDE
     Dosage: ON DAYS 121 OF C1 (CONSOLIDATION THERAPY)
     Route: 048
  5. LENALIDOMIDE [Suspect]
     Active Substance: LENALIDOMIDE
     Dosage: ON DAYS 128 OF C3C12 (CONSOLIDATION THERAPY)
     Route: 048
  6. LENALIDOMIDE [Suspect]
     Active Substance: LENALIDOMIDE
     Dosage: ON DAYS 128 OF C3C12 (CONSOLIDATION THERAPY)
     Route: 048
  7. LENALIDOMIDE [Suspect]
     Active Substance: LENALIDOMIDE
     Dosage: MAINTENANCE THERAPY
     Route: 048
  8. LENALIDOMIDE [Suspect]
     Active Substance: LENALIDOMIDE
     Dosage: AFTER 3MONTHS AND CONTINUED UNTIL DISEASE PROGRESSION, UNACCEPTABLE TOXICITY OR WITHDRAWAL OF CONSEN
     Route: 048
  9. DEXAMETHASONE [Suspect]
     Active Substance: DEXAMETHASONE
     Indication: Plasma cell myeloma
     Dosage: ON DAYS 1, 8, 15 AND 22 FOR CYCLES 14 (SALVAGE THERAPY)
     Route: 065
  10. DEXAMETHASONE [Suspect]
     Active Substance: DEXAMETHASONE
     Dosage: FROM C1 TO C12 (CONSOLIDATION THERAPY)
     Route: 065

REACTIONS (4)
  - Neutropenia [Unknown]
  - Toxicity to various agents [Unknown]
  - Colitis [Unknown]
  - Oesophagitis [Unknown]
